FAERS Safety Report 9481872 (Version 2)
Quarter: 2013Q3

REPORT INFORMATION
  Report Type: Spontaneous
  Country: US (occurrence: US)
  Receive Date: 20130828
  Receipt Date: 20130918
  Transmission Date: 20140515
  Serious: Yes (Hospitalization)
  Sender: FDA-Public Use
  Company Number: US-009507513-1308USA011289

PATIENT
  Sex: Male

DRUGS (1)
  1. TEMODAR [Suspect]
     Route: 048

REACTIONS (3)
  - Adverse event [Unknown]
  - Wrong technique in drug usage process [Unknown]
  - Inappropriate schedule of drug administration [Unknown]
